FAERS Safety Report 6348506-2 (Version None)
Quarter: 2009Q3

REPORT INFORMATION
  Report Type: 
  Country: None (occurrence: None)
  Receive Date: 20090911
  Receipt Date: 20070802
  Transmission Date: 20100115
  Serious: Yes (Hospitalization, Other)
  Sender: FDA-Public Use
  Company Number: US-ASTRAZENECA-2007UW12148

PATIENT
  Age: 52 Year
  Sex: Male
  Weight: 65.8 kg

DRUGS (24)
  1. SEROQUEL [Suspect]
     Indication: BIPOLAR DISORDER
     Dosage: 25 MG - 500 MG
     Route: 048
     Dates: start: 20021219, end: 20070401
  2. SEROQUEL [Suspect]
     Indication: TACHYPHRENIA
     Dosage: 25 MG - 500 MG
     Route: 048
     Dates: start: 20021219, end: 20070401
  3. SEROQUEL [Suspect]
     Dosage: 100 - 400 MG
     Route: 048
     Dates: start: 20050812, end: 20070101
  4. SEROQUEL [Suspect]
     Dosage: 100 - 400 MG
     Route: 048
     Dates: start: 20050812, end: 20070101
  5. ZYPREXA [Concomitant]
     Dates: start: 20070401
  6. RISPERDAL [Concomitant]
     Dates: start: 20070406, end: 20070411
  7. METHADONE HCL [Concomitant]
  8. DEPAKOTE ER [Concomitant]
     Indication: BIPOLAR DISORDER
     Dosage: 1500 TO 1800 MG
     Route: 048
     Dates: start: 20010604
  9. DEPAKOTE ER [Concomitant]
     Indication: AFFECTIVE DISORDER
     Dosage: 1500 TO 1800 MG
     Route: 048
     Dates: start: 20010604
  10. CYMBALTA [Concomitant]
     Indication: DEPRESSION
     Dosage: 20 TO 60 MG
     Dates: start: 20050717
  11. ATIVAN [Concomitant]
     Indication: ANXIETY
     Route: 048
     Dates: start: 20021204
  12. PROTONIX [Concomitant]
     Dates: start: 20060329
  13. METOPROLOL TARTRATE [Concomitant]
     Dosage: 50 TO 100 MG
     Dates: start: 20050902
  14. ZANTAC [Concomitant]
     Indication: GASTROOESOPHAGEAL REFLUX DISEASE
     Route: 048
     Dates: start: 20010604
  15. ZOLOFT [Concomitant]
     Indication: OBSESSIVE-COMPULSIVE DISORDER
     Dosage: 50 TO 100 MG
     Route: 048
     Dates: start: 20010604
  16. NEXIUM [Concomitant]
     Dates: start: 20050805
  17. OXYCONTIN [Concomitant]
     Indication: PAIN
     Dates: start: 20050801
  18. GEODON [Concomitant]
     Dates: start: 20050708
  19. TRAZODONE HCL [Concomitant]
     Dates: start: 20050808
  20. CLARITIN [Concomitant]
     Route: 048
     Dates: start: 20021225
  21. LEXAPRO [Concomitant]
     Route: 048
     Dates: start: 20061013
  22. LISINOPRIL [Concomitant]
     Route: 048
     Dates: start: 20070209
  23. NIASPAN [Concomitant]
     Route: 048
     Dates: start: 20070209
  24. PROCARDIA [Concomitant]
     Route: 048
     Dates: start: 20021226

REACTIONS (6)
  - DIABETES MELLITUS [None]
  - DIABETES MELLITUS INADEQUATE CONTROL [None]
  - DIABETIC NEUROPATHY [None]
  - HYPERGLYCAEMIA [None]
  - HYPOGLYCAEMIA [None]
  - TYPE 2 DIABETES MELLITUS [None]
